FAERS Safety Report 21514419 (Version 1)
Quarter: 2022Q4

REPORT INFORMATION
  Report Type: Spontaneous
  Country: JP (occurrence: JP)
  Receive Date: 20221027
  Receipt Date: 20221027
  Transmission Date: 20230112
  Serious: Yes (Death, Life-Threatening, Hospitalization, Other)
  Sender: FDA-Public Use
  Company Number: None

PATIENT
  Age: 79 Year
  Sex: Male

DRUGS (11)
  1. ORGADRONE [Suspect]
     Active Substance: DEXAMETHASONE SODIUM PHOSPHATE
     Indication: COVID-19
     Dosage: 6 MG, QD
     Route: 065
  2. METHYLPREDNISOLONE [Suspect]
     Active Substance: METHYLPREDNISOLONE
     Indication: COVID-19
     Dosage: 1000 MG, QD
     Route: 065
  3. METHYLPREDNISOLONE [Suspect]
     Active Substance: METHYLPREDNISOLONE
     Dosage: 70 MG, QD
     Route: 065
  4. METHYLPREDNISOLONE [Suspect]
     Active Substance: METHYLPREDNISOLONE
     Dosage: 60 MG, QD
     Route: 065
  5. PREDNISOLONE [Concomitant]
     Active Substance: PREDNISOLONE
     Indication: Polymyalgia rheumatica
     Dosage: 2 MG, QD
     Route: 065
  6. BETAMETHASONE [Concomitant]
     Active Substance: BETAMETHASONE
     Indication: Polymyalgia rheumatica
     Dosage: 0.5 MG, QD
     Route: 065
  7. METHOTREXATE [Concomitant]
     Active Substance: METHOTREXATE
     Indication: Polymyalgia rheumatica
     Dosage: 10 MG, 1 DOSE WEEKLY
     Route: 065
  8. CICLESONIDE [Concomitant]
     Active Substance: CICLESONIDE
     Indication: COVID-19
     Dosage: 200 UG, BID
  9. HEPARIN [Concomitant]
     Active Substance: HEPARIN SODIUM
     Indication: COVID-19
     Dosage: UNK
     Route: 065
  10. IVERMECTIN [Concomitant]
     Active Substance: IVERMECTIN
     Indication: COVID-19
     Dosage: 9 MG, QD
     Route: 048
  11. MEROPENEM [Concomitant]
     Active Substance: MEROPENEM
     Indication: COVID-19
     Dosage: 3 G, QD
     Route: 065

REACTIONS (2)
  - Bronchopulmonary aspergillosis [Fatal]
  - Product use in unapproved indication [Unknown]
